FAERS Safety Report 8004161-7 (Version None)
Quarter: 2011Q4

REPORT INFORMATION
  Report Type: 
  Country: None (occurrence: None)
  Receive Date: 20111223
  Receipt Date: 20111216
  Transmission Date: 20120403
  Serious: Yes (Hospitalization, Disabling)
  Sender: FDA-Public Use
  Company Number: US-BIOGENIDEC-2011BI042269

PATIENT
  Age: 64 Year
  Sex: Female
  Weight: 107 kg

DRUGS (11)
  1. VICODIN [Concomitant]
     Route: 048
  2. VICODIN [Concomitant]
     Route: 048
  3. AMBIEN [Concomitant]
     Route: 048
  4. PLAVIX [Concomitant]
     Route: 048
  5. OMEPRAZOLE [Concomitant]
     Route: 048
     Dates: start: 20110808
  6. TYSABRI [Suspect]
     Indication: MULTIPLE SCLEROSIS
     Route: 042
     Dates: start: 20081103
  7. ATIVAN [Concomitant]
     Route: 048
     Dates: start: 20110623
  8. KEFLEX [Concomitant]
     Route: 048
     Dates: start: 20110729
  9. SOMA [Concomitant]
     Route: 048
     Dates: start: 20110907
  10. ZOLOFT [Concomitant]
     Route: 048
  11. VESICARE [Concomitant]
     Route: 048
     Dates: start: 20110911

REACTIONS (2)
  - CHEST PAIN [None]
  - ATRIAL FIBRILLATION [None]
